FAERS Safety Report 11888563 (Version 1)
Quarter: 2016Q1

REPORT INFORMATION
  Report Type: Spontaneous
  Country: GB (occurrence: GB)
  Receive Date: 20160105
  Receipt Date: 20160105
  Transmission Date: 20160526
  Serious: Yes (Other)
  Sender: FDA-Public Use
  Company Number: GB-SA-2016SA000391

PATIENT
  Age: 81 Year
  Sex: Male

DRUGS (1)
  1. RIFAMPICIN [Suspect]
     Active Substance: RIFAMPIN
     Indication: ARTHRITIS BACTERIAL
     Route: 048
     Dates: start: 20150601, end: 20150628

REACTIONS (2)
  - Interstitial lung disease [Recovering/Resolving]
  - Eosinophilia [Recovering/Resolving]
